FAERS Safety Report 17239017 (Version 2)
Quarter: 2021Q1

REPORT INFORMATION
  Report Type: Spontaneous
  Country: PL (occurrence: PL)
  Receive Date: 20200106
  Receipt Date: 20210316
  Transmission Date: 20210419
  Serious: Yes (Hospitalization, Other)
  Sender: FDA-Public Use
  Company Number: PL-MYLANLABS-2019M1118784

PATIENT
  Age: 89 Month
  Sex: Male

DRUGS (17)
  1. AMOXICILLIN AND CLAVULANATE POTASSIUM [Concomitant]
     Active Substance: AMOXICILLIN\CLAVULANATE POTASSIUM
     Dosage: UNK
     Route: 042
     Dates: start: 2018
  2. DEXAMETHASONE. [Concomitant]
     Active Substance: DEXAMETHASONE
     Indication: ANAPHYLACTIC REACTION
     Dosage: UNK
  3. BUDESONIDE. [Suspect]
     Active Substance: BUDESONIDE
     Indication: ANAPHYLACTIC REACTION
     Dosage: UNK
     Route: 055
  4. AZITHROMYCIN ANHYDROUS. [Concomitant]
     Active Substance: AZITHROMYCIN ANHYDROUS
     Indication: PNEUMONIA
     Dosage: UNK
     Dates: start: 2018
  5. OXYGEN. [Concomitant]
     Active Substance: OXYGEN
     Indication: ANAPHYLACTIC REACTION
     Dosage: UNK
  6. BIODACYNA [Concomitant]
     Active Substance: AMIKACIN SULFATE
     Indication: PRODUCT USED FOR UNKNOWN INDICATION
     Dosage: UNK
     Route: 041
  7. AMOXICILLIN/CLAVULANIC ACID [Suspect]
     Active Substance: AMOXICILLIN\CLAVULANIC ACID
     Indication: ASTHMA
     Dosage: UNK
     Route: 048
     Dates: start: 201804
  8. EPINEPHRINE. [Concomitant]
     Active Substance: EPINEPHRINE
     Indication: ANAPHYLACTIC REACTION
     Dosage: UNK
  9. AMOXICILLIN. [Concomitant]
     Active Substance: AMOXICILLIN
     Indication: PHARYNGITIS
     Dosage: UNK
  10. IBUPROFEN. [Suspect]
     Active Substance: IBUPROFEN
     Dosage: UNK
  11. CEFUROXIME. [Suspect]
     Active Substance: CEFUROXIME
     Indication: INFECTION
     Dosage: UNK
     Route: 048
     Dates: start: 201705
  12. IBUPROFEN. [Suspect]
     Active Substance: IBUPROFEN
     Indication: PYREXIA
     Dosage: UNK
     Route: 048
  13. AMOXICILLIN AND CLAVULANATE POTASSIUM [Concomitant]
     Active Substance: AMOXICILLIN\CLAVULANATE POTASSIUM
     Indication: ASTHMA
     Dosage: UNK
     Route: 042
     Dates: start: 201804
  14. AMOXICILLIN AND CLAVULANATE POTASSIUM [Concomitant]
     Active Substance: AMOXICILLIN\CLAVULANATE POTASSIUM
     Indication: PHARYNGITIS
     Dosage: UNK
     Route: 042
     Dates: start: 201804
  15. CLARITHROMYCIN. [Suspect]
     Active Substance: CLARITHROMYCIN
     Indication: INFECTION
     Dosage: UNK
  16. PARACETAMOL [Concomitant]
     Active Substance: ACETAMINOPHEN
     Indication: PYREXIA
     Dosage: UNK
  17. AMOXICILLIN AND CLAVULANATE POTASSIUM [Concomitant]
     Active Substance: AMOXICILLIN\CLAVULANATE POTASSIUM
     Indication: PNEUMONIA
     Dosage: UNK
     Route: 042

REACTIONS (17)
  - Drug hypersensitivity [Unknown]
  - Face oedema [Unknown]
  - Anaphylactic reaction [Unknown]
  - Helicobacter infection [Unknown]
  - Dyspnoea [Unknown]
  - Pruritus [Unknown]
  - Rotavirus infection [Unknown]
  - Blood pressure decreased [Unknown]
  - Pyrexia [Unknown]
  - Diarrhoea [Unknown]
  - Off label use [Unknown]
  - Intentional product misuse [Unknown]
  - Vomiting [Unknown]
  - Asthma [Recovered/Resolved]
  - Bronchospasm [Unknown]
  - Malaise [Unknown]
  - Urticaria [Unknown]

NARRATIVE: CASE EVENT DATE: 201804
